FAERS Safety Report 7734940-2 (Version None)
Quarter: 2011Q3

REPORT INFORMATION
  Report Type: 
  Country: None (occurrence: None)
  Receive Date: 20110907
  Receipt Date: 20110901
  Transmission Date: 20111222
  Serious: Yes (Other)
  Sender: FDA-Public Use
  Company Number: PHHY2010CA46607

PATIENT
  Sex: Male

DRUGS (4)
  1. AVAPRO [Concomitant]
  2. CARDIZEM [Concomitant]
  3. ZOLEDRONOC ACID [Suspect]
     Indication: OSTEOPOROSIS
     Dosage: UNK
     Dates: start: 20091016
  4. AMITRIPTYLINE HCL [Concomitant]

REACTIONS (5)
  - HYPOTENSION [None]
  - BACK PAIN [None]
  - LIP PAIN [None]
  - CEREBROVASCULAR ACCIDENT [None]
  - BACK DISORDER [None]
